FAERS Safety Report 8910807 (Version 1)
Quarter: 2012Q4

REPORT INFORMATION
  Report Type: 
  Country: CN (occurrence: CN)
  Receive Date: 20121116
  Receipt Date: 20121116
  Transmission Date: 20130627
  Serious: Yes (Hospitalization)
  Sender: FDA-Public Use
  Company Number: CN-PFIZER INC-2012284420

PATIENT
  Age: 57 Year

DRUGS (1)
  1. SUTENT [Suspect]
     Indication: RENAL CELL CARCINOMA
     Dosage: 50 mg, 1x/day
     Route: 048
     Dates: start: 2011

REACTIONS (4)
  - Blood pressure increased [Recovered/Resolved]
  - Cardiac disorder [Unknown]
  - White blood cell count decreased [Unknown]
  - Diarrhoea [Unknown]
